FAERS Safety Report 12430031 (Version 11)
Quarter: 2020Q3

REPORT INFORMATION
  Report Type: Report from Study
  Country: AT (occurrence: AT)
  Receive Date: 20160602
  Receipt Date: 20181018
  Transmission Date: 20201105
  Serious: Yes (Hospitalization, Other)
  Sender: FDA-Public Use
  Company Number: AT-JNJFOC-20160504250

PATIENT
  Age: 76 Year
  Sex: Female
  Weight: 87 kg

DRUGS (29)
  1. ZOMETA [Concomitant]
     Active Substance: ZOLEDRONIC ACID
     Indication: OSTEOPOROSIS PROPHYLAXIS
     Route: 042
     Dates: start: 20160421, end: 20160421
  2. AMLODIPINE [Concomitant]
     Active Substance: AMLODIPINE BESYLATE
     Indication: HYPERTENSION
     Route: 048
     Dates: end: 20160430
  3. CALCIDURAN [Concomitant]
     Indication: OSTEOPOROSIS PROPHYLAXIS
     Dosage: 1 TABLET
     Route: 048
     Dates: end: 20160420
  4. CANDESARTAN. [Concomitant]
     Active Substance: CANDESARTAN
     Indication: HYPERTENSION
     Route: 048
     Dates: end: 20160501
  5. CALCIDURAN [Concomitant]
     Indication: OSTEOPOROSIS PROPHYLAXIS
     Route: 048
  6. XANTOFYL PALMITATE [Concomitant]
     Active Substance: XANTOFYL PALMITATE
     Indication: MACULAR DEGENERATION
     Route: 048
  7. DEXPANTHENOL. [Concomitant]
     Active Substance: DEXPANTHENOL
     Indication: MUCOSITIS MANAGEMENT
     Route: 061
     Dates: start: 20160424
  8. LOVENOX [Concomitant]
     Active Substance: ENOXAPARIN SODIUM
     Indication: THROMBOSIS PROPHYLAXIS
     Route: 058
     Dates: start: 20160422, end: 20160428
  9. TRITTICO [Concomitant]
     Active Substance: TRAZODONE HYDROCHLORIDE
     Indication: SLEEP DISORDER THERAPY
     Route: 048
     Dates: start: 20160424
  10. DARATUMUMAB [Suspect]
     Active Substance: DARATUMUMAB
     Indication: PLASMA CELL MYELOMA
     Dosage: C1D22 ON 13?MAYSECOND CYCLE ON 20?MAY?2016; C2D15 ON 03?JUN?2016
     Route: 042
     Dates: start: 20160513
  11. TEBOFORTAN [Concomitant]
     Active Substance: GINKGO
     Indication: ANTIDEPRESSANT THERAPY
     Route: 048
     Dates: end: 20160420
  12. LOVENOX [Concomitant]
     Active Substance: ENOXAPARIN SODIUM
     Indication: THROMBOSIS PROPHYLAXIS
     Route: 058
     Dates: start: 20160502, end: 20160523
  13. NEBIVOLOL. [Concomitant]
     Active Substance: NEBIVOLOL
     Indication: HYPERTENSION
     Route: 048
  14. THROMBOSTAD [Concomitant]
     Indication: THROMBOSIS PROPHYLAXIS
     Route: 048
     Dates: end: 20160419
  15. COLECALCIFEROL?CHOLESTERIN [Concomitant]
     Indication: OSTEOPOROSIS PROPHYLAXIS
     Route: 048
  16. ESCIN [Concomitant]
     Active Substance: ESCIN
     Indication: VEIN DISORDER
     Route: 048
  17. ARANESP [Concomitant]
     Active Substance: DARBEPOETIN ALFA
     Indication: ANAEMIA
     Route: 058
     Dates: start: 20160425, end: 20160523
  18. XANOR [Concomitant]
     Active Substance: ALPRAZOLAM
     Indication: PANIC ATTACK
     Route: 048
     Dates: start: 20160423
  19. MAGNESIUM VERLA CONCENTRATED [Concomitant]
     Indication: PROPHYLAXIS
     Route: 048
     Dates: end: 20180420
  20. VALACICLOVIR [Concomitant]
     Active Substance: VALACYCLOVIR HYDROCHLORIDE
     Indication: PROPHYLAXIS
     Route: 048
     Dates: start: 20160422
  21. PANTOLOC [Concomitant]
     Active Substance: PANTOPRAZOLE SODIUM
     Indication: GASTROINTESTINAL DISORDER THERAPY
     Route: 048
     Dates: start: 20160422
  22. DARATUMUMAB [Suspect]
     Active Substance: DARATUMUMAB
     Indication: PLASMA CELL MYELOMA
     Dosage: ON HOLD ON D8 D15
     Route: 042
     Dates: start: 20160422, end: 20160422
  23. NOMEXOR [Concomitant]
     Active Substance: NEBIVOLOL HYDROCHLORIDE
     Indication: HYPERTENSION
     Route: 048
  24. PANTOGAR [Concomitant]
     Active Substance: AMINOBENZOIC ACID\CALCIUM PANTOTHENATE\CYSTINE\KERATIN\THIAMINE MONONITRATE
     Indication: PROPHYLAXIS
     Route: 048
     Dates: end: 20180420
  25. AMPHO MORONAL [Concomitant]
     Active Substance: AMPHOTERICIN B
     Indication: ANTIFUNGAL PROPHYLAXIS
     Route: 048
     Dates: start: 20160422
  26. TARDYFERON FOL [Concomitant]
     Active Substance: FERROUS SULFATE\FOLIC ACID
     Indication: ANAEMIA
     Route: 048
     Dates: start: 20160425, end: 20160524
  27. REVLIMID [Suspect]
     Active Substance: LENALIDOMIDE
     Indication: PLASMA CELL MYELOMA
     Dosage: D1?21; C1D22 ON 13?MAY?2016 2ND CYCLE INITIATED ON 20?MAY?2016, C2D15 ON 03?JUN?2016
     Route: 048
     Dates: start: 20160422
  28. DEXAMETHASONE. [Suspect]
     Active Substance: DEXAMETHASONE
     Indication: PLASMA CELL MYELOMA
     Dosage: D1, 8, 15, 22; ALSO REPORTED AS 20MG; C2D15 ON 03?JUN?2016
     Route: 048
     Dates: start: 20160422, end: 20160422
  29. LIDAPRIM [Concomitant]
     Indication: PROPHYLAXIS
     Route: 048
     Dates: start: 20160422

REACTIONS (3)
  - Atrial fibrillation [Recovered/Resolved]
  - Orthostatic intolerance [Recovered/Resolved]
  - Pyrexia [Recovered/Resolved]

NARRATIVE: CASE EVENT DATE: 20160426
